FAERS Safety Report 6874899-3 (Version None)
Quarter: 2010Q3

REPORT INFORMATION
  Report Type: 
  Country: None (occurrence: None)
  Receive Date: 20100723
  Receipt Date: 20100712
  Transmission Date: 20110219
  Serious: Yes (Hospitalization)
  Sender: FDA-Public Use
  Company Number: 230249K09GBR

PATIENT
  Age: 51 Year
  Sex: Male

DRUGS (2)
  1. REBIF [Suspect]
     Dosage: 22 MCG, 3 IN 1 WK, SUBCUTANEOUS; 44 MCG, 3 IN 1 WK, SUBCUTANEOUS
     Route: 058
     Dates: start: 20090715, end: 20100525
  2. REBIF [Suspect]
     Dosage: 22 MCG, 3 IN 1 WK, SUBCUTANEOUS; 44 MCG, 3 IN 1 WK, SUBCUTANEOUS
     Route: 058
     Dates: start: 20100525

REACTIONS (10)
  - HEADACHE [None]
  - INJECTION SITE DISCOLOURATION [None]
  - INJECTION SITE ERYTHEMA [None]
  - INJECTION SITE INFECTION [None]
  - INJECTION SITE PAIN [None]
  - INSOMNIA [None]
  - MOTOR DYSFUNCTION [None]
  - MULTIPLE SCLEROSIS RELAPSE [None]
  - SHOULDER OPERATION [None]
  - SNEEZING [None]
